FAERS Safety Report 7811909-0 (Version None)
Quarter: 2011Q4

REPORT INFORMATION
  Report Type: 
  Country: None (occurrence: None)
  Receive Date: 20111013
  Receipt Date: 20110929
  Transmission Date: 20120403
  Serious: Yes (Other)
  Sender: FDA-Public Use
  Company Number: PHHY2011BR87015

PATIENT
  Sex: Male

DRUGS (2)
  1. DIOVAN HCT [Suspect]
     Dosage: 2 DF, (80 MG VALS AND 12.5 MG HYDR)
  2. DIOVAN HCT [Suspect]
     Indication: HYPERTENSION
     Dosage: 80 MG VALS AND 12.5 MG HYDR (1 TABLET DAILY)
     Route: 048

REACTIONS (5)
  - BLOOD PRESSURE FLUCTUATION [None]
  - FORMICATION [None]
  - INTERVERTEBRAL DISC PROTRUSION [None]
  - BLOOD PRESSURE INCREASED [None]
  - DRY MOUTH [None]
